FAERS Safety Report 8092840-5 (Version None)
Quarter: 2012Q1

REPORT INFORMATION
  Report Type: 
  Country: None (occurrence: None)
  Receive Date: 20120128
  Receipt Date: 20110726
  Transmission Date: 20120608
  Serious: No
  Sender: FDA-Public Use
  Company Number: US-ABBOTT-11P-163-0841751-00

PATIENT
  Sex: Male

DRUGS (3)
  1. HUMIRA [Suspect]
     Indication: PSORIASIS
     Route: 058
     Dates: start: 20110127
  2. INDOMETHACIN [Concomitant]
     Indication: RHEUMATOID ARTHRITIS
  3. HUMIRA [Suspect]
     Indication: PSORIATIC ARTHROPATHY

REACTIONS (3)
  - PAIN IN EXTREMITY [None]
  - OEDEMA PERIPHERAL [None]
  - TENDERNESS [None]
